FAERS Safety Report 9269774 (Version 1)
Quarter: 2013Q2

REPORT INFORMATION
  Report Type: Spontaneous
  Country: US (occurrence: None)
  Receive Date: 20130503
  Receipt Date: 20130503
  Transmission Date: 20140414
  Serious: Yes (Hospitalization)
  Sender: FDA-Public Use
  Company Number: None

PATIENT
  Sex: Female
  Weight: 120.34 kg

DRUGS (2)
  1. COUMADIN [Suspect]
     Indication: DEEP VEIN THROMBOSIS
     Route: 048
     Dates: start: 20121107, end: 20130501
  2. COUMADIN [Suspect]
     Indication: DISEASE RECURRENCE
     Route: 048
     Dates: start: 20121107, end: 20130501

REACTIONS (2)
  - Product label issue [None]
  - International normalised ratio increased [None]
